FAERS Safety Report 4341810-9 (Version None)
Quarter: 2004Q2

REPORT INFORMATION
  Report Type: 
  Country: None (occurrence: None)
  Receive Date: 20040420
  Receipt Date: 20040407
  Transmission Date: 20050107
  Serious: Yes (Hospitalization, Other)
  Sender: FDA-Public Use
  Company Number: GB-GLAXOSMITHKLINE-B0329716A

PATIENT
  Age: 27 Year
  Sex: Female

DRUGS (5)
  1. LAMOTRIGINE [Suspect]
     Indication: EPILEPSY
     Route: 048
     Dates: start: 20040206, end: 20040323
  2. EPILIM CHRONO [Concomitant]
     Route: 065
     Dates: start: 20030411
  3. FOLIC ACID [Concomitant]
     Route: 065
     Dates: start: 20031003
  4. E45 [Concomitant]
     Route: 065
     Dates: start: 20040402
  5. CALCICHEW D3 [Concomitant]
     Dosage: 2TAB PER DAY
     Route: 065
     Dates: start: 20040326

REACTIONS (2)
  - EPIDERMOLYSIS BULLOSA [None]
  - SCAR [None]
